FAERS Safety Report 4868655-5 (Version None)
Quarter: 2005Q4

REPORT INFORMATION
  Report Type: 
  Country: None (occurrence: None)
  Receive Date: 20051223
  Receipt Date: 20051213
  Transmission Date: 20060501
  Serious: Yes (Hospitalization)
  Sender: FDA-Public Use
  Company Number: 2005146238

PATIENT
  Age: 35 Year
  Sex: Female

DRUGS (2)
  1. DEPO-MEDROL [Suspect]
     Indication: MUSCLE INJURY
     Dosage: (80 MG), INTRAMUSCULAR; EPIDURAL
     Dates: start: 20030115
  2. MACAINE (BUPIVACAINE) [Suspect]
     Indication: MUSCLE INJURY
     Dosage: INTRAMUSCULAR; EPIDURAL
     Dates: start: 20030115

REACTIONS (1)
  - OSTEONECROSIS [None]
